FAERS Safety Report 19061920 (Version 1)
Quarter: 2021Q1

REPORT INFORMATION
  Report Type: Spontaneous
  Country: DE (occurrence: DE)
  Receive Date: 20210326
  Receipt Date: 20210326
  Transmission Date: 20210420
  Serious: Yes (Other)
  Sender: FDA-Public Use
  Company Number: DE-ASTELLAS-2021US010569

PATIENT
  Age: 83 Year
  Sex: Female

DRUGS (2)
  1. BETMIGA [Suspect]
     Active Substance: MIRABEGRON
     Dosage: 0.5 DF, ONCE DAILY EVERY EVENING
     Route: 065
     Dates: start: 20210316, end: 20210317
  2. BETMIGA [Suspect]
     Active Substance: MIRABEGRON
     Indication: URINARY INCONTINENCE
     Dosage: 50 MG, ONCE DAILY (EVERY EVENING)
     Route: 065
     Dates: start: 20210305, end: 20210315

REACTIONS (2)
  - Blood glucose increased [Recovering/Resolving]
  - Wrong technique in product usage process [Unknown]
